FAERS Safety Report 8918719 (Version 1)
Quarter: 2012Q4

REPORT INFORMATION
  Report Type: 
  Country: IE (occurrence: IE)
  Receive Date: 20121120
  Receipt Date: 20121120
  Transmission Date: 20130627
  Serious: No
  Sender: FDA-Public Use
  Company Number: IE-009507513-1211IRL004729

PATIENT
  Sex: Male

DRUGS (3)
  1. SYCREST [Suspect]
     Indication: BIPOLAR DISORDER
     Dosage: 5 mg, bid
     Route: 060
  2. SYCREST [Suspect]
     Dosage: 10 mg, bid
     Route: 060
  3. LITHIUM [Concomitant]

REACTIONS (2)
  - Urinary tract infection [Unknown]
  - Rash [Unknown]
